FAERS Safety Report 8488512-5 (Version None)
Quarter: 2012Q3

REPORT INFORMATION
  Report Type: 
  Country: None (occurrence: None)
  Receive Date: 20120705
  Receipt Date: 20120627
  Transmission Date: 20120928
  Serious: Yes (Other)
  Sender: FDA-Public Use
  Company Number: FR-SHIRE-SPV1-2012-00597

PATIENT
  Age: 78 Year
  Sex: Male

DRUGS (3)
  1. CORDARONE [Concomitant]
     Indication: PRODUCT USED FOR UNKNOWN INDICATION
  2. HYDREA [Suspect]
     Indication: PRODUCT USED FOR UNKNOWN INDICATION
     Dosage: UNK, UNKNOWN
     Route: 065
  3. ANAGRELIDE HYDROCHLORIDE [Suspect]
     Indication: PRODUCT USED FOR UNKNOWN INDICATION
     Dosage: 2 DF, 1X/DAY:QD
     Route: 065

REACTIONS (1)
  - ARTERITIS CORONARY [None]
